FAERS Safety Report 4843859-6 (Version None)
Quarter: 2005Q4

REPORT INFORMATION
  Report Type: 
  Country: None (occurrence: None)
  Receive Date: 20051129
  Receipt Date: 20051118
  Transmission Date: 20060501
  Serious: No
  Sender: FDA-Public Use
  Company Number: BR-2005-024596

PATIENT
  Age: 34 Year
  Sex: Female

DRUGS (1)
  1. MIRENA [Suspect]
     Indication: CONTRACEPTION
     Dosage: 20 UG/DAY, CONR, INTRA-UTERINE
     Route: 015
     Dates: start: 20050921, end: 20051110

REACTIONS (2)
  - OVARIAN TORSION [None]
  - UTERINE LEIOMYOMA [None]
